FAERS Safety Report 23523557 (Version 1)
Quarter: 2024Q1

REPORT INFORMATION
  Report Type: 
  Country: None (occurrence: None)
  Receive Date: 20240214
  Receipt Date: 20240214
  Transmission Date: 20240409
  Serious: No
  Sender: FDA-Public Use
  Company Number: US-ROCHE-3504745

PATIENT

DRUGS (1)
  1. OCREVUS [Suspect]
     Active Substance: OCRELIZUMAB
     Dosage: 300 MG ON DAY 1 AND 15 THEN 600 MG EVERY 6 MONTHS

REACTIONS (5)
  - Acute respiratory failure [None]
  - Pneumonia aspiration [None]
  - Appendicitis [None]
  - Atypical pneumonia [None]
  - Pain [None]
